FAERS Safety Report 9249412 (Version 1)
Quarter: 2013Q2

REPORT INFORMATION
  Report Type: Spontaneous
  Country: US (occurrence: US)
  Receive Date: 20130423
  Receipt Date: 20130423
  Transmission Date: 20140414
  Serious: No
  Sender: FDA-Public Use
  Company Number: US-ASTRAZENECA-2013SE22941

PATIENT
  Age: 72 Year
  Sex: Female
  Weight: 74.8 kg

DRUGS (2)
  1. FASLODEX [Suspect]
     Indication: BREAST CANCER
     Route: 030
     Dates: start: 200612
  2. ZOMETA [Suspect]
     Indication: BONE MARROW DISORDER
     Dosage: EVERY OTHER MOUNTH
     Route: 065

REACTIONS (10)
  - Urinary incontinence [Unknown]
  - Myalgia [Unknown]
  - Muscle tightness [Unknown]
  - Influenza [Unknown]
  - Feeling abnormal [Unknown]
  - Disease progression [Unknown]
  - Tumour marker increased [Unknown]
  - Faecal incontinence [Unknown]
  - Pain [Unknown]
  - Intentional drug misuse [Unknown]
